FAERS Safety Report 6459822-8 (Version None)
Quarter: 2009Q4

REPORT INFORMATION
  Report Type: 
  Country: None (occurrence: None)
  Receive Date: 20091128
  Receipt Date: 20090929
  Transmission Date: 20100525
  Serious: No
  Sender: FDA-Public Use
  Company Number: US-AMGEN-KDL366952

PATIENT
  Sex: Female
  Weight: 77.2 kg

DRUGS (8)
  1. ENBREL [Suspect]
     Indication: DRUG USE FOR UNKNOWN INDICATION
     Route: 058
  2. EFFEXOR [Concomitant]
  3. VICODIN [Concomitant]
  4. SYNTHROID [Concomitant]
  5. DIOVAN [Concomitant]
  6. GLUCOPHAGE [Concomitant]
  7. IBUPROFEN [Concomitant]
  8. CYTOMEL [Concomitant]

REACTIONS (2)
  - BRONCHITIS [None]
  - INFLUENZA [None]
